FAERS Safety Report 8465079-9 (Version None)
Quarter: 2012Q2

REPORT INFORMATION
  Report Type: 
  Country: None (occurrence: None)
  Receive Date: 20120618
  Receipt Date: 20120605
  Transmission Date: 20120825
  Serious: Yes (Hospitalization, Other)
  Sender: FDA-Public Use
  Company Number: 2012P1037877

PATIENT
  Age: 65 Year
  Sex: Male
  Weight: 72.5755 kg

DRUGS (3)
  1. UNSPECIFIED BLOOD PRESSURE PILLS [Concomitant]
  2. PREDNISONE TAB [Suspect]
     Indication: ASTHMA
     Dosage: 40 MG;QD;
     Dates: start: 20120326, end: 20120404
  3. PREDNISONE TAB [Suspect]
     Indication: PNEUMONIA
     Dosage: 40 MG;QD;
     Dates: start: 20120326, end: 20120404

REACTIONS (11)
  - ELECTROLYTE IMBALANCE [None]
  - LOSS OF CONSCIOUSNESS [None]
  - EATING DISORDER [None]
  - SUICIDE ATTEMPT [None]
  - FEELING ABNORMAL [None]
  - ABNORMAL BEHAVIOUR [None]
  - INSOMNIA [None]
  - POLLAKIURIA [None]
  - PSYCHOTIC DISORDER [None]
  - CONVULSION [None]
  - INAPPROPRIATE ANTIDIURETIC HORMONE SECRETION [None]
